FAERS Safety Report 4894695-6 (Version None)
Quarter: 2006Q1

REPORT INFORMATION
  Report Type: 
  Country: None (occurrence: None)
  Receive Date: 20060130
  Receipt Date: 20051108
  Transmission Date: 20060701
  Serious: Yes (Hospitalization, Other)
  Sender: FDA-Public Use
  Company Number: US-SP-2005-02386

PATIENT
  Age: 68 Year
  Sex: Male

DRUGS (3)
  1. THERACYS [Suspect]
     Indication: BLADDER CANCER
     Route: 043
     Dates: start: 20051026
  2. THERACYS [Suspect]
     Route: 043
     Dates: start: 20051026
  3. PNEUMOVAX 23 [Suspect]
     Route: 065

REACTIONS (17)
  - ASTHENIA [None]
  - BOVINE TUBERCULOSIS [None]
  - CARDIAC FAILURE CONGESTIVE [None]
  - CHILLS [None]
  - COUGH [None]
  - DECREASED APPETITE [None]
  - DIARRHOEA [None]
  - DYSPNOEA EXERTIONAL [None]
  - DYSURIA [None]
  - HEPATIC ENZYME INCREASED [None]
  - INTERNATIONAL NORMALISED RATIO INCREASED [None]
  - MICTURITION URGENCY [None]
  - NAUSEA [None]
  - PYELONEPHRITIS [None]
  - PYREXIA [None]
  - SEPSIS [None]
  - URINARY TRACT INFECTION [None]
